FAERS Safety Report 8543649-7 (Version None)
Quarter: 2012Q3

REPORT INFORMATION
  Report Type: 
  Country: None (occurrence: None)
  Receive Date: 20120727
  Receipt Date: 20120719
  Transmission Date: 20120928
  Serious: Yes (Other)
  Sender: FDA-Public Use
  Company Number: PE-PFIZER INC-2012176035

PATIENT
  Sex: Female

DRUGS (2)
  1. PHENYTOIN [Suspect]
     Indication: STATUS EPILEPTICUS
     Dosage: 1100 MG, UNK
     Route: 040
  2. VALPROIC ACID [Concomitant]
     Indication: EPILEPSY

REACTIONS (4)
  - DYSKINESIA [None]
  - TOXICITY TO VARIOUS AGENTS [None]
  - HALLUCINATION, VISUAL [None]
  - CHOREOATHETOSIS [None]
